FAERS Safety Report 8582125-2 (Version None)
Quarter: 2012Q3

REPORT INFORMATION
  Report Type: 
  Country: None (occurrence: None)
  Receive Date: 20120727
  Receipt Date: 20120720
  Transmission Date: 20120928
  Serious: Yes (Life-Threatening, Hospitalization)
  Sender: FDA-Public Use
  Company Number: DSA_58636_2012

PATIENT
  Age: 86 Year
  Sex: Male

DRUGS (6)
  1. VALSARTAN [Concomitant]
  2. DIGOXIN [Suspect]
     Indication: PRODUCT USED FOR UNKNOWN INDICATION
     Dosage: (0.25 MG 5X/WEEK ORAL)
     Route: 048
     Dates: start: 20120501, end: 20120625
  3. BISOPROLOL FUMARATE [Suspect]
     Indication: PRODUCT USED FOR UNKNOWN INDICATION
     Dosage: (AS NEEDED ORAL)
     Route: 048
     Dates: end: 20120626
  4. POTASSIUM CHLORIDE [Suspect]
     Indication: PRODUCT USED FOR UNKNOWN INDICATION
     Dosage: (600 MG QD ORAL)
     Route: 048
     Dates: start: 20120501, end: 20120626
  5. DILTIAZEM [Suspect]
     Indication: PRODUCT USED FOR UNKNOWN INDICATION
     Dosage: (300 MG QD ORAL)
     Route: 048
     Dates: start: 20120501, end: 20120626
  6. BUMETANIDE [Concomitant]

REACTIONS (6)
  - BRADYCARDIA [None]
  - OEDEMA [None]
  - DYSPNOEA [None]
  - HYPERKALAEMIA [None]
  - RENAL FAILURE ACUTE [None]
  - CARDIOACTIVE DRUG LEVEL ABOVE THERAPEUTIC [None]
